FAERS Safety Report 13895871 (Version 1)
Quarter: 2017Q3

REPORT INFORMATION
  Report Type: Spontaneous
  Country: US (occurrence: None)
  Receive Date: 20170817
  Receipt Date: 20170817
  Transmission Date: 20171127
  Serious: Yes (Hospitalization)
  Sender: FDA-Public Use
  Company Number: None

PATIENT
  Age: 25 Year
  Sex: Female

DRUGS (21)
  1. MULTIVITAMIN [Concomitant]
     Active Substance: VITAMINS
  2. SODIUM CHLORIDE. [Concomitant]
     Active Substance: SODIUM CHLORIDE
  3. SULFAMETHOXAZOLE/TRIMETHOPRIM [Concomitant]
     Active Substance: SULFAMETHOXAZOLE\TRIMETHOPRIM
  4. VORICONAZOLE. [Concomitant]
     Active Substance: VORICONAZOLE
  5. CALCIUM + VITAMIN D [Concomitant]
     Active Substance: CALCIUM\VITAMIN D
  6. DOCUSATE [Concomitant]
     Active Substance: DOCUSATE
  7. PREDNISONE. [Concomitant]
     Active Substance: PREDNISONE
  8. VALGANCICLOVIR. [Concomitant]
     Active Substance: VALGANCICLOVIR
  9. AZITHROMYCIN ANHYDROUS. [Concomitant]
     Active Substance: AZITHROMYCIN ANHYDROUS
  10. METOPROL SUCCINATE [Concomitant]
     Active Substance: METOPROLOL SUCCINATE
  11. OMEPRAZOLE. [Concomitant]
     Active Substance: OMEPRAZOLE
  12. METOCLOPRAMIDE. [Suspect]
     Active Substance: METOCLOPRAMIDE
     Indication: IMPAIRED GASTRIC EMPTYING
     Route: 048
     Dates: start: 20170511, end: 20170531
  13. MAGNESIUM OXIDE. [Concomitant]
     Active Substance: MAGNESIUM OXIDE
  14. MYCOPHENOLATE [Concomitant]
     Active Substance: MYCOPHENOLIC ACID
  15. PREGABALIN. [Concomitant]
     Active Substance: PREGABALIN
  16. TACROLIMUS. [Concomitant]
     Active Substance: TACROLIMUS
  17. ALBUTEROL NEBULIZING SOLUTION [Concomitant]
  18. GUAFENESIN [Concomitant]
     Active Substance: GUAIFENESIN
  19. ONDANSETRON [Concomitant]
     Active Substance: ONDANSETRON
  20. ASPIRIN. [Concomitant]
     Active Substance: ASPIRIN
  21. BENZONATATE. [Concomitant]
     Active Substance: BENZONATATE

REACTIONS (2)
  - Breast discharge [None]
  - Vomiting [None]

NARRATIVE: CASE EVENT DATE: 20170525
